FAERS Safety Report 6541601-4 (Version None)
Quarter: 2010Q1

REPORT INFORMATION
  Report Type: 
  Country: None (occurrence: None)
  Receive Date: 20100119
  Receipt Date: 20100112
  Transmission Date: 20100710
  Serious: Yes (Death)
  Sender: FDA-Public Use
  Company Number: GB-BAYER-200932073GPV

PATIENT
  Sex: Male

DRUGS (3)
  1. ALEMTUZUMAB [Suspect]
     Indication: DEMYELINATING POLYNEUROPATHY
     Route: 042
  2. HYDROCORTISONE [Concomitant]
     Route: 042
  3. CETIRIZINE HCL [Concomitant]
     Route: 042

REACTIONS (2)
  - ANAEMIA HAEMOLYTIC AUTOIMMUNE [None]
  - CARDIAC ARREST [None]
